FAERS Safety Report 25436047 (Version 2)
Quarter: 2025Q4

REPORT INFORMATION
  Report Type: Spontaneous
  Country: EU (occurrence: EU)
  Receive Date: 20250613
  Receipt Date: 20251121
  Transmission Date: 20260119
  Serious: Yes (Hospitalization, Other)
  Sender: CELLTRION
  Company Number: EU-ROCHE-10000168328

PATIENT

DRUGS (2)
  1. BEVACIZUMAB [Suspect]
     Active Substance: BEVACIZUMAB
     Indication: Metastases to lymph nodes
     Dosage: 1250 MG, EVERY 3 WEEK; ON 06-DEC-2024, RECEIVED MOST RECENT DOSE OF BEVACIZUMAB PRIOR TO AE.
     Route: 042
     Dates: start: 20240119
  2. ATEZOLIZUMAB [Suspect]
     Active Substance: ATEZOLIZUMAB
     Indication: Metastases to lymph nodes
     Dosage: 1200 MG, EVERY 3 WEEK; ON 06-DEC-2024, RECEIVED MOST RECENT DOSE OF ATEZOLIZUMAB PRIOR TO AE.
     Route: 042
     Dates: start: 20240119

REACTIONS (2)
  - Nephritis [Recovered/Resolved]
  - Intentional product use issue [Unknown]

NARRATIVE: CASE EVENT DATE: 20241227
